FAERS Safety Report 9554094 (Version 2)
Quarter: 2013Q4

REPORT INFORMATION
  Report Type: Spontaneous
  Country: US (occurrence: US)
  Receive Date: 20130925
  Receipt Date: 20131122
  Transmission Date: 20140711
  Serious: Yes (Death, Hospitalization)
  Sender: FDA-Public Use
  Company Number: US-B.I. PHARMACEUTICALS,INC./RIDGEFIELD-2013-BI-29854BP

PATIENT
  Age: 82 Year
  Sex: Female

DRUGS (18)
  1. PRADAXA [Suspect]
     Indication: PRODUCT USED FOR UNKNOWN INDICATION
     Dosage: 300 MG
     Route: 048
     Dates: start: 2012, end: 201302
  2. PRADAXA [Suspect]
     Dosage: 150 MG
     Route: 048
     Dates: start: 201302
  3. INSULIN [Concomitant]
     Indication: DIABETES MELLITUS
     Route: 058
  4. LASIX [Concomitant]
     Route: 048
  5. POTASSIUM CHLORIDE [Concomitant]
  6. HYDRALAZINE [Concomitant]
  7. BUMETANIDE [Concomitant]
  8. LIPITOR [Concomitant]
  9. NAMENDA [Concomitant]
  10. ARICEPT [Concomitant]
  11. XANAX [Concomitant]
  12. DIOVAN [Concomitant]
  13. PREDNISONE [Concomitant]
  14. OXYGEN [Concomitant]
  15. DILTIAZEM [Concomitant]
  16. LEXAPRO [Concomitant]
  17. ADVAIR [Concomitant]
  18. HYDROCHLOROTHIAZIDE [Concomitant]

REACTIONS (3)
  - Cardiac failure congestive [Fatal]
  - Local swelling [Unknown]
  - Joint swelling [Unknown]
